FAERS Safety Report 9260339 (Version 1)
Quarter: 2013Q2

REPORT INFORMATION
  Report Type: Spontaneous
  Country: US (occurrence: US)
  Receive Date: 20130429
  Receipt Date: 20130429
  Transmission Date: 20140414
  Serious: No
  Sender: FDA-Public Use
  Company Number: US-B.I. PHARMACEUTICALS,INC./RIDGEFIELD-2013-BI-10215BP

PATIENT
  Age: 90 Year
  Sex: Female
  Weight: 82 kg

DRUGS (1)
  1. ATROVENT [Suspect]
     Indication: LUNG NEOPLASM MALIGNANT
     Route: 055
     Dates: start: 200408, end: 201302

REACTIONS (1)
  - Macular degeneration [Not Recovered/Not Resolved]
